FAERS Safety Report 13177973 (Version 2)
Quarter: 2017Q2

REPORT INFORMATION
  Report Type: Spontaneous
  Country: CA (occurrence: CA)
  Receive Date: 20170202
  Receipt Date: 20170518
  Transmission Date: 20170830
  Serious: Yes (Other)
  Sender: FDA-Public Use
  Company Number: CA-ROCHE-1888259

PATIENT
  Age: 13 Year
  Sex: Female

DRUGS (4)
  1. XOLAIR [Suspect]
     Active Substance: OMALIZUMAB
     Dosage: UNK
     Route: 058
     Dates: start: 20170427
  2. ZENHALE [Concomitant]
     Active Substance: FORMOTEROL FUMARATE\MOMETASONE FUROATE
     Indication: PRODUCT USED FOR UNKNOWN INDICATION
     Dosage: UNK
     Route: 065
  3. XOLAIR [Suspect]
     Active Substance: OMALIZUMAB
     Indication: ASTHMA
     Dosage: 300 MG, Q 4 WEEKS
     Route: 058
     Dates: start: 20140205
  4. XOLAIR [Suspect]
     Active Substance: OMALIZUMAB
     Dosage: UNK
     Route: 058
     Dates: start: 20161110

REACTIONS (7)
  - Viral infection [Unknown]
  - Viral upper respiratory tract infection [Unknown]
  - Wheezing [Unknown]
  - Emphysema [Unknown]
  - Forced expiratory volume decreased [Unknown]
  - Obstructive airways disorder [Unknown]
  - Weight increased [Unknown]

NARRATIVE: CASE EVENT DATE: 20151117
